FAERS Safety Report 9108642 (Version 3)
Quarter: 2013Q1

REPORT INFORMATION
  Report Type: Spontaneous
  Country: US (occurrence: US)
  Receive Date: 20130222
  Receipt Date: 20130319
  Transmission Date: 20140127
  Serious: Yes (Hospitalization)
  Sender: FDA-Public Use
  Company Number: US-BIOGENIDEC-2013BI016185

PATIENT
  Age: 65 Year
  Sex: Female

DRUGS (2)
  1. TYSABRI [Suspect]
     Indication: MULTIPLE SCLEROSIS
     Route: 042
     Dates: start: 20120825, end: 20130112
  2. SERTRALINE [Concomitant]
     Indication: DEPRESSION

REACTIONS (3)
  - Carpal tunnel syndrome [Unknown]
  - Cervical radiculopathy [Unknown]
  - Multiple sclerosis relapse [Recovered/Resolved]
